FAERS Safety Report 11497430 (Version 4)
Quarter: 2019Q1

REPORT INFORMATION
  Report Type: Spontaneous
  Country: US (occurrence: US)
  Receive Date: 20150911
  Receipt Date: 20190220
  Transmission Date: 20190417
  Serious: Yes (Hospitalization, Other)
  Sender: FDA-Public Use
  Company Number: US-DSJP-DSU-2015-117875

PATIENT

DRUGS (3)
  1. BENICAR [Suspect]
     Active Substance: OLMESARTAN MEDOXOMIL
     Dosage: 40 MG, QD
     Route: 048
     Dates: start: 20070810, end: 20101229
  2. BENICAR [Suspect]
     Active Substance: OLMESARTAN MEDOXOMIL
     Dosage: 40 MG, QD
     Route: 048
     Dates: end: 20111025
  3. BENICAR [Suspect]
     Active Substance: OLMESARTAN MEDOXOMIL
     Indication: HYPERTENSION
     Dosage: 20 MG, QD
     Route: 048
     Dates: start: 20070601, end: 20111014

REACTIONS (20)
  - Generalised oedema [Unknown]
  - Diverticulum [Not Recovered/Not Resolved]
  - Renal tubular necrosis [Unknown]
  - Diarrhoea [Unknown]
  - Coeliac disease [Unknown]
  - Haemorrhoids [Unknown]
  - Acute kidney injury [Recovering/Resolving]
  - Duodenal stenosis [Unknown]
  - Abdominal adhesions [Unknown]
  - Intestinal perforation [Recovered/Resolved]
  - Sprue-like enteropathy [Recovering/Resolving]
  - Duodenitis [Unknown]
  - Hiatus hernia [Unknown]
  - Intestinal obstruction [Recovered/Resolved]
  - Syncope [Recovered/Resolved]
  - Gastritis haemorrhagic [Unknown]
  - Sepsis [Unknown]
  - Barrett^s oesophagus [Recovered/Resolved]
  - Hypotension [Unknown]
  - Gastrointestinal haemorrhage [Unknown]

NARRATIVE: CASE EVENT DATE: 2010
